FAERS Safety Report 18291922 (Version 3)
Quarter: 2020Q4

REPORT INFORMATION
  Report Type: Spontaneous
  Country: JP (occurrence: JP)
  Receive Date: 20200922
  Receipt Date: 20201124
  Transmission Date: 20210113
  Serious: Yes (Other)
  Sender: FDA-Public Use
  Company Number: JP-BRISTOL-MYERS SQUIBB COMPANY-BMS-2018-094320

PATIENT
  Age: 77 Year
  Sex: Male

DRUGS (16)
  1. DECADRON (DEXAMETHASONE SODIUM PHOSPHATE) [Suspect]
     Active Substance: DEXAMETHASONE SODIUM PHOSPHATE
     Dosage: 8 MILLIGRAM
     Route: 048
     Dates: start: 20191225
  2. DECADRON (DEXAMETHASONE SODIUM PHOSPHATE) [Suspect]
     Active Substance: DEXAMETHASONE SODIUM PHOSPHATE
     Dosage: UNK
     Route: 048
     Dates: start: 2020
  3. CALONAL [Concomitant]
     Active Substance: ACETAMINOPHEN
     Indication: PRODUCT USED FOR UNKNOWN INDICATION
     Dosage: UNK
     Route: 065
  4. DECADRON (DEXAMETHASONE SODIUM PHOSPHATE) [Suspect]
     Active Substance: DEXAMETHASONE SODIUM PHOSPHATE
     Dosage: 2 MILLIGRAM
     Route: 048
     Dates: start: 2020
  5. DERMOVATE [Suspect]
     Active Substance: CLOBETASOL
     Indication: RASH
     Dosage: UNK
     Route: 061
     Dates: start: 201902
  6. ROZEREM [Concomitant]
     Active Substance: RAMELTEON
     Indication: PRODUCT USED FOR UNKNOWN INDICATION
     Dosage: UNK
     Route: 065
  7. DECADRON (DEXAMETHASONE SODIUM PHOSPHATE) [Suspect]
     Active Substance: DEXAMETHASONE SODIUM PHOSPHATE
     Dosage: 4 MILLIGRAM
     Route: 048
     Dates: start: 20191126
  8. PROTON PUMP INHIBITORS [Concomitant]
     Active Substance: UNSPECIFIED INGREDIENT
     Indication: PRODUCT USED FOR UNKNOWN INDICATION
     Route: 065
  9. OPDIVO [Suspect]
     Active Substance: NIVOLUMAB
     Indication: GASTRIC CANCER
     Dosage: 160 MILLIGRAM, Q4WK
     Route: 041
     Dates: start: 20180911, end: 20181023
  10. DECADRON (DEXAMETHASONE SODIUM PHOSPHATE) [Suspect]
     Active Substance: DEXAMETHASONE SODIUM PHOSPHATE
     Dosage: UNK
     Route: 048
     Dates: start: 202001
  11. MAGLAX [MAGNESIUM OXIDE] [Concomitant]
     Indication: PRODUCT USED FOR UNKNOWN INDICATION
     Dosage: UNK
     Route: 065
  12. RINDERON V [Suspect]
     Active Substance: BETAMETHASONE VALERATE
     Indication: RASH
     Dosage: UNK
     Route: 061
     Dates: start: 20181225
  13. DECADRON (DEXAMETHASONE SODIUM PHOSPHATE) [Suspect]
     Active Substance: DEXAMETHASONE SODIUM PHOSPHATE
     Indication: RASH
     Dosage: 4 MILLIGRAM
     Route: 048
     Dates: start: 20191105, end: 20191119
  14. DECADRON (DEXAMETHASONE SODIUM PHOSPHATE) [Suspect]
     Active Substance: DEXAMETHASONE SODIUM PHOSPHATE
     Dosage: 1 MILLIGRAM
     Route: 048
     Dates: start: 2020, end: 2020
  15. OPDIVO [Suspect]
     Active Substance: NIVOLUMAB
     Dosage: 240 MILLIGRAM
     Route: 041
     Dates: start: 20181106, end: 20200107
  16. FUTHAN [Concomitant]
     Active Substance: NAFAMOSTAT MESYLATE
     Indication: PRODUCT USED FOR UNKNOWN INDICATION
     Dosage: UNK
     Route: 065

REACTIONS (10)
  - Pain in extremity [Recovered/Resolved]
  - Blood corticotrophin decreased [Unknown]
  - Rash [Not Recovered/Not Resolved]
  - Blood thyroid stimulating hormone decreased [Unknown]
  - Oral candidiasis [Unknown]
  - Swelling [Recovered/Resolved]
  - Oesophageal candidiasis [Unknown]
  - Pruritus [Unknown]
  - Arthralgia [Recovered/Resolved]
  - Insomnia [Not Recovered/Not Resolved]

NARRATIVE: CASE EVENT DATE: 20180919
